FAERS Safety Report 9529105 (Version 1)
Quarter: 2013Q3

REPORT INFORMATION
  Report Type: Not Available
  Country: US (occurrence: US)
  Receive Date: 20130916
  Receipt Date: 20130916
  Transmission Date: 20140515
  Serious: Yes (Other)
  Sender: FDA-Public Use
  Company Number: US-LUNDBECK-DKLU1087823

PATIENT
  Sex: Male

DRUGS (3)
  1. ONFI [Suspect]
     Indication: EPILEPSY
     Route: 048
     Dates: start: 201211
  2. ONFI [Suspect]
     Route: 048
     Dates: start: 201212
  3. ZONEGRAN [Concomitant]
     Indication: PRODUCT USED FOR UNKNOWN INDICATION

REACTIONS (1)
  - Convulsion [Unknown]
